FAERS Safety Report 23518874 (Version 1)
Quarter: 2024Q1

REPORT INFORMATION
  Report Type: Spontaneous
  Country: US (occurrence: None)
  Receive Date: 20240213
  Receipt Date: 20240213
  Transmission Date: 20240410
  Serious: Yes (Congenital Anomaly)
  Sender: FDA-Public Use
  Company Number: None

PATIENT
  Age: 0 Year
  Sex: Female
  Weight: 3.2 kg

DRUGS (4)
  1. LURASIDONE [Suspect]
     Active Substance: LURASIDONE
     Indication: Depression
     Dates: start: 20190927
  2. ESCITALOPRAM [Concomitant]
  3. CLONAZEPAM [Concomitant]
  4. VENLAFAXINE [Concomitant]

REACTIONS (2)
  - Congenital hydronephrosis [None]
  - Foetal exposure during pregnancy [None]

NARRATIVE: CASE EVENT DATE: 20200424
